FAERS Safety Report 20237123 (Version 1)
Quarter: 2021Q4

REPORT INFORMATION
  Report Type: Spontaneous
  Country: FR (occurrence: FR)
  Receive Date: 20211228
  Receipt Date: 20211228
  Transmission Date: 20220303
  Serious: Yes (Death)
  Sender: FDA-Public Use
  Company Number: None

PATIENT
  Age: 59 Year
  Sex: Male

DRUGS (13)
  1. STIVARGA [Suspect]
     Active Substance: REGORAFENIB
     Indication: Gastrointestinal stromal tumour
     Dosage: 1 FP
     Route: 048
     Dates: start: 20211118
  2. SUTENT [Suspect]
     Active Substance: SUNITINIB MALATE
     Indication: Gastrointestinal stromal tumour
     Dosage: 1 FP
     Route: 048
     Dates: start: 2021, end: 20211028
  3. CROSCARMELLOSE SODIUM [Concomitant]
     Active Substance: CROSCARMELLOSE SODIUM
     Dosage: UNK
  4. TITANIUM DIOXIDE [Concomitant]
     Active Substance: TITANIUM DIOXIDE
     Dosage: UNK
  5. IRON SUCROSE [Concomitant]
     Active Substance: IRON SUCROSE
     Dosage: UNK
  6. IRON SUCROSE [Concomitant]
     Active Substance: IRON SUCROSE
     Dosage: UNK
  7. FERRIC OXIDE RED [Concomitant]
     Active Substance: FERRIC OXIDE RED
     Dosage: UNK
  8. GELATIN [Concomitant]
     Active Substance: GELATIN
     Dosage: UNK
  9. MANNITOL [Concomitant]
     Active Substance: MANNITOL
     Dosage: UNK
  10. SUNITINIB MALATE [Concomitant]
     Active Substance: SUNITINIB MALATE
     Dosage: UNK
  11. POVIDONE [Concomitant]
     Active Substance: POVIDONE
     Dosage: UNK
  12. MAGNESIUM STEARATE [Concomitant]
     Active Substance: MAGNESIUM STEARATE
     Dosage: UNK
  13. SUNITINIB [Concomitant]
     Active Substance: SUNITINIB
     Dosage: UNK

REACTIONS (1)
  - Cardiogenic shock [Fatal]

NARRATIVE: CASE EVENT DATE: 20211120
